FAERS Safety Report 21075555 (Version 1)
Quarter: 2022Q3

REPORT INFORMATION
  Report Type: Spontaneous
  Country: US (occurrence: US)
  Receive Date: 20220713
  Receipt Date: 20220713
  Transmission Date: 20221026
  Serious: Yes (Other)
  Sender: FDA-Public Use
  Company Number: US-TENSHI KAIZEN PRIVATE LIMITED-2022TK000010

PATIENT
  Sex: Male

DRUGS (15)
  1. LORATADINE [Suspect]
     Active Substance: LORATADINE
     Indication: Anaphylactic reaction
     Dosage: UNK
     Route: 048
  2. LORATADINE [Suspect]
     Active Substance: LORATADINE
     Dosage: 10 MILLIGRAM, TWICE DAILY (BID) AS PRE-MEDICATION
     Route: 065
  3. DIPHENHYDRAMINE [Suspect]
     Active Substance: DIPHENHYDRAMINE
     Indication: Anaphylactic reaction
     Dosage: 25 MILLIGRAM, UNKNOWN
     Route: 048
  4. RANITIDINE [Suspect]
     Active Substance: RANITIDINE
     Indication: Anaphylactic reaction
     Dosage: 150 MILLIGRAM, UNKNOWN
     Route: 048
  5. RANITIDINE [Suspect]
     Active Substance: RANITIDINE
     Dosage: 150 MILLIGRAM, TWICE DAILY (BID) AS PRE-MEDICATION
     Route: 065
  6. PEGVALIASE [Concomitant]
     Active Substance: PEGVALIASE
     Indication: Phenylketonuria
     Dosage: 10 MILLIGRAM, UNKNOWN
  7. PEGVALIASE [Concomitant]
     Active Substance: PEGVALIASE
     Dosage: 2.5 MILLIGRAM, THRICE A WEEK (FOR TWO WEEKS)
  8. PEGVALIASE [Concomitant]
     Active Substance: PEGVALIASE
     Dosage: 10 MILLIGRAM, UNKNOWN
  9. PEGVALIASE [Concomitant]
     Active Substance: PEGVALIASE
     Dosage: 10 MILLIGRAM, 4 TIMES A WEEK
  10. PEGVALIASE [Concomitant]
     Active Substance: PEGVALIASE
     Dosage: UNK, 10 MILLIGRAM PER DAY
  11. PEGVALIASE [Concomitant]
     Active Substance: PEGVALIASE
     Dosage: 20 MILLIGRAM, UNKNOWN
  12. PEGVALIASE [Concomitant]
     Active Substance: PEGVALIASE
     Dosage: UNK, 10 MILLIGRAM PER DAY FOR 2 WEEKS
  13. PEGVALIASE [Concomitant]
     Active Substance: PEGVALIASE
     Dosage: UNK, 10 MILLIGRAM/20 MILLIGRAM ON ALTERNATING DAYS FOR 2 WEEKS
  14. PEGVALIASE [Concomitant]
     Active Substance: PEGVALIASE
     Dosage: UNK, 20 MILLIGRAM PER DAY
  15. EPINEPHRINE [Concomitant]
     Active Substance: EPINEPHRINE
     Indication: Anaphylactic reaction
     Dosage: UNK, AUTO-INJECTABLE EPINEPHRINE
     Route: 065

REACTIONS (2)
  - Drug ineffective [Unknown]
  - Off label use [Unknown]
